FAERS Safety Report 17536382 (Version 2)
Quarter: 2025Q1

REPORT INFORMATION
  Report Type: Spontaneous
  Country: DK (occurrence: DK)
  Receive Date: 20200313
  Receipt Date: 20250130
  Transmission Date: 20250409
  Serious: Yes (Congenital Anomaly, Other)
  Sender: AUROBINDO
  Company Number: DK-PFIZER INC-9935898

PATIENT

DRUGS (1)
  1. FLUCONAZOLE [Suspect]
     Active Substance: FLUCONAZOLE
     Indication: Product used for unknown indication
     Route: 064

REACTIONS (3)
  - Developmental hip dysplasia [Unknown]
  - Maternal exposure during pregnancy [Unknown]
  - Dacryostenosis congenital [Unknown]
